FAERS Safety Report 17115615 (Version 1)
Quarter: 2019Q4

REPORT INFORMATION
  Report Type: Report from Study
  Country: RO (occurrence: RO)
  Receive Date: 20191205
  Receipt Date: 20191205
  Transmission Date: 20200122
  Serious: Yes (Hospitalization, Other)
  Sender: FDA-Public Use
  Company Number: RO-GILEAD-2019-0441184

PATIENT
  Age: 48 Year
  Sex: Female

DRUGS (4)
  1. LEDIPASVIR/SOFOSBUVIR [Suspect]
     Active Substance: LEDIPASVIR\SOFOSBUVIR
     Indication: HEPATIC CIRRHOSIS
  2. PRESTARIUM [PERINDOPRIL] [Concomitant]
  3. EFICEF [CEFIXIME TRIHYDRATE] [Concomitant]
  4. LEDIPASVIR/SOFOSBUVIR [Suspect]
     Active Substance: LEDIPASVIR\SOFOSBUVIR
     Indication: HEPATITIS C
     Dosage: 1 DOSAGE FORM, QD
     Route: 048
     Dates: start: 20190626, end: 20190919

REACTIONS (6)
  - Ureteral stent insertion [Unknown]
  - Nephrolithiasis [Recovered/Resolved]
  - Pruritus [Recovered/Resolved]
  - Renal pain [Not Recovered/Not Resolved]
  - Rash macular [Recovered/Resolved]
  - Iron deficiency anaemia [Not Recovered/Not Resolved]

NARRATIVE: CASE EVENT DATE: 201911
